FAERS Safety Report 26164565 (Version 1)
Quarter: 2025Q4

REPORT INFORMATION
  Report Type: Spontaneous
  Country: JP (occurrence: JP)
  Receive Date: 20251216
  Receipt Date: 20251216
  Transmission Date: 20260117
  Serious: Yes (Hospitalization)
  Sender: AMGEN
  Company Number: JP-AMGEN-JPNSP2025190036

PATIENT
  Age: 61 Year
  Sex: Female

DRUGS (5)
  1. IMDELLTRA [Suspect]
     Active Substance: TARLATAMAB-DLLE
     Indication: Small cell lung cancer
     Dosage: 1 MILLIGRAM, DAY 1, DRIP INFUSION
     Route: 040
     Dates: start: 20250917
  2. IMDELLTRA [Suspect]
     Active Substance: TARLATAMAB-DLLE
     Dosage: 10 MILLIGRAM, DAY 8, DRIP INFUSION
     Route: 040
     Dates: start: 20250924
  3. IMDELLTRA [Suspect]
     Active Substance: TARLATAMAB-DLLE
     Dosage: 10 MILLIGRAM, DRIP INFUSION
     Route: 040
     Dates: start: 20251001
  4. IMDELLTRA [Suspect]
     Active Substance: TARLATAMAB-DLLE
     Dosage: 10 MILLIGRAM, DRIP INFUSION
     Route: 040
     Dates: start: 20251024
  5. IMDELLTRA [Suspect]
     Active Substance: TARLATAMAB-DLLE
     Dosage: 10 MILLIGRAM, DRIP INFUSION
     Route: 040
     Dates: start: 20251106

REACTIONS (4)
  - Cytokine release syndrome [Recovered/Resolved]
  - Neutrophil count decreased [Recovered/Resolved]
  - White blood cell count decreased [Recovered/Resolved]
  - Small cell lung cancer [Not Recovered/Not Resolved]

NARRATIVE: CASE EVENT DATE: 20250918
